FAERS Safety Report 21984528 (Version 2)
Quarter: 2023Q1

REPORT INFORMATION
  Report Type: Report from Study
  Country: US (occurrence: US)
  Receive Date: 20230213
  Receipt Date: 20230215
  Transmission Date: 20230418
  Serious: No
  Sender: FDA-Public Use
  Company Number: US-002147023-NVSC2023US030561

PATIENT
  Age: 15 Year
  Sex: Male

DRUGS (1)
  1. OMNITROPE [Suspect]
     Active Substance: SOMATROPIN
     Indication: Hypopituitarism
     Dosage: 0.5 ML, QD
     Route: 058
     Dates: start: 20230125

REACTIONS (2)
  - Injection site pain [Unknown]
  - Injury associated with device [Unknown]

NARRATIVE: CASE EVENT DATE: 20230130
